FAERS Safety Report 20754989 (Version 1)
Quarter: 2022Q2

REPORT INFORMATION
  Report Type: Report from Study
  Country: US (occurrence: US)
  Receive Date: 20220427
  Receipt Date: 20220427
  Transmission Date: 20220720
  Serious: No
  Sender: FDA-Public Use
  Company Number: US-NOVARTISTESTPH-NVSC2022US092912

PATIENT
  Sex: Male

DRUGS (1)
  1. ENTRESTO [Suspect]
     Active Substance: SACUBITRIL\VALSARTAN
     Indication: Cardiac failure
     Dosage: 1 DOSAGE FORM, BID (97/103MG)
     Route: 048

REACTIONS (5)
  - Haemorrhoidal haemorrhage [Unknown]
  - Fluid retention [Unknown]
  - Accident at home [Unknown]
  - Neck injury [Unknown]
  - Limb injury [Unknown]
